FAERS Safety Report 6456575-4 (Version None)
Quarter: 2009Q4

REPORT INFORMATION
  Report Type: 
  Country: None (occurrence: None)
  Receive Date: 20091125
  Receipt Date: 20091119
  Transmission Date: 20100525
  Serious: Yes (Congenital Anomaly)
  Sender: FDA-Public Use
  Company Number: AU-SANOFI-AVENTIS-2009SA003251

PATIENT
  Sex: Male
  Weight: 3.2 kg

DRUGS (7)
  1. ENOXAPARIN SODIUM [Suspect]
     Route: 064
     Dates: start: 20081201, end: 20090801
  2. ACETAMINOPHEN W/ CODEINE [Concomitant]
     Route: 064
     Dates: start: 20090801, end: 20090801
  3. PANADOL [Concomitant]
     Route: 064
     Dates: start: 20090801, end: 20090801
  4. METHYLDOPA [Concomitant]
     Route: 064
     Dates: start: 20090801, end: 20090801
  5. LABETALOL HYDROCHLORIDE [Concomitant]
     Route: 064
     Dates: start: 20090801, end: 20090801
  6. FOLIC ACID [Concomitant]
     Route: 064
  7. MULTI-VITAMINS [Concomitant]
     Route: 064

REACTIONS (3)
  - CLEFT LIP [None]
  - DRUG EXPOSURE DURING PREGNANCY [None]
  - INGUINAL HERNIA [None]
